FAERS Safety Report 10039042 (Version 1)
Quarter: 2014Q1

REPORT INFORMATION
  Report Type: Report from Study
  Country: IN (occurrence: IN)
  Receive Date: 20140326
  Receipt Date: 20140326
  Transmission Date: 20141002
  Serious: Yes (Other)
  Sender: FDA-Public Use
  Company Number: IN-BRISTOL-MYERS SQUIBB COMPANY-20566469

PATIENT
  Age: 27 Year
  Sex: Female

DRUGS (3)
  1. STOCRIN TABS [Suspect]
     Indication: HIV INFECTION
     Route: 048
     Dates: start: 20080331, end: 20140214
  2. LAMIVUDINE + ZIDOVUDINE [Suspect]
     Indication: HIV INFECTION
     Dosage: TABLET AND CAOPSULE?1DF: 2TABS/CAPS
     Route: 048
     Dates: start: 20080331
  3. LOPINAVIR + RITONAVIR [Suspect]
     Indication: HIV INFECTION
     Route: 048
     Dates: start: 20140215

REACTIONS (3)
  - Abortion induced [Unknown]
  - Benign hydatidiform mole [Recovered/Resolved]
  - Maternal exposure timing unspecified [Unknown]
